FAERS Safety Report 9224854 (Version 2)
Quarter: 2013Q2

REPORT INFORMATION
  Report Type: Spontaneous
  Country: JP (occurrence: JP)
  Receive Date: 20130411
  Receipt Date: 20130422
  Transmission Date: 20140414
  Serious: Yes (Other)
  Sender: FDA-Public Use
  Company Number: JP-PFIZER INC-2013108644

PATIENT
  Age: 31 Year
  Sex: Female

DRUGS (2)
  1. PREMARIN [Suspect]
     Dosage: 1.25 MG, 1X/DAY
     Route: 048
     Dates: start: 200612, end: 201211
  2. PROVERA [Suspect]
     Dosage: 5 MG, 1X/DAY
     Route: 048
     Dates: start: 200612, end: 201211

REACTIONS (1)
  - Coronary artery dissection [Unknown]
